FAERS Safety Report 8003637 (Version 3)
Quarter: 2013Q1

REPORT INFORMATION
  Report Type: Spontaneous
  Country: US (occurrence: US)
  Receive Date: 20110623
  Receipt Date: 20130213
  Transmission Date: 20140127
  Serious: Yes (Hospitalization)
  Sender: FDA-Public Use
  Company Number: US-BIOGENIDEC-2011BI022619

PATIENT
  Age: 57 Year
  Sex: Male

DRUGS (3)
  1. AVONEX [Suspect]
     Indication: MULTIPLE SCLEROSIS
     Route: 030
     Dates: start: 20091225
  2. LOTENSIN [Concomitant]
     Indication: HYPERTENSION
  3. MYOLEPTIN (NOS) [Concomitant]

REACTIONS (21)
  - Tremor [Recovered/Resolved]
  - Vibratory sense increased [Recovered/Resolved]
  - Herpes zoster [Recovered/Resolved]
  - Gait disturbance [Not Recovered/Not Resolved]
  - Lymphoedema [Not Recovered/Not Resolved]
  - Skin ulcer [Not Recovered/Not Resolved]
  - Arthropathy [Not Recovered/Not Resolved]
  - Overweight [Not Recovered/Not Resolved]
  - Back pain [Not Recovered/Not Resolved]
  - Visual acuity reduced [Not Recovered/Not Resolved]
  - Dandruff [Recovered/Resolved]
  - Somnolence [Recovered/Resolved]
  - Amnesia [Not Recovered/Not Resolved]
  - Central nervous system lesion [Unknown]
  - Chest pain [Not Recovered/Not Resolved]
  - Injection site reaction [Unknown]
  - Musculoskeletal pain [Not Recovered/Not Resolved]
  - Pain in extremity [Not Recovered/Not Resolved]
  - Hyperhidrosis [Recovered/Resolved]
  - Pruritus [Recovered/Resolved]
  - Depression [Not Recovered/Not Resolved]
